FAERS Safety Report 16212506 (Version 3)
Quarter: 2019Q2

REPORT INFORMATION
  Report Type: Report from Study
  Country: US (occurrence: US)
  Receive Date: 20190418
  Receipt Date: 20190524
  Transmission Date: 20190711
  Serious: Yes (Hospitalization)
  Sender: FDA-Public Use
  Company Number: US-GILEAD-2019-0392150

PATIENT
  Age: 57 Year
  Sex: Female

DRUGS (5)
  1. ELIQUIS [Concomitant]
     Active Substance: APIXABAN
  2. ORENITRAM [Concomitant]
     Active Substance: TREPROSTINIL
     Indication: PRODUCT USED FOR UNKNOWN INDICATION
     Route: 065
  3. AMBRISENTAN [Suspect]
     Active Substance: AMBRISENTAN
     Indication: PULMONARY ARTERIAL HYPERTENSION
     Dosage: 5 MG, QD
     Route: 048
     Dates: start: 20180319
  4. TADALAFIL. [Concomitant]
     Active Substance: TADALAFIL
  5. REMODULIN [Concomitant]
     Active Substance: TREPROSTINIL

REACTIONS (7)
  - Oxygen saturation decreased [Unknown]
  - Malaise [Unknown]
  - Headache [Not Recovered/Not Resolved]
  - Pain in jaw [Not Recovered/Not Resolved]
  - Nasopharyngitis [Unknown]
  - Cough [Unknown]
  - Weight increased [Not Recovered/Not Resolved]
